FAERS Safety Report 13595905 (Version 1)
Quarter: 2017Q2

REPORT INFORMATION
  Report Type: Spontaneous
  Country: US (occurrence: US)
  Receive Date: 20170531
  Receipt Date: 20170531
  Transmission Date: 20170830
  Serious: No
  Sender: FDA-Public Use
  Company Number: US-JNJFOC-20170509740

PATIENT
  Age: 89 Year
  Sex: Female
  Weight: 58.97 kg

DRUGS (2)
  1. TYLENOL 8 HR ARTHRITIS PAIN [Suspect]
     Active Substance: ACETAMINOPHEN
     Indication: PAIN IN EXTREMITY
     Dosage: 2 CAPLET ONCE BEFORE BED
     Route: 048
     Dates: start: 20170428
  2. TYLENOL 8 HR ARTHRITIS PAIN [Suspect]
     Active Substance: ACETAMINOPHEN
     Indication: SLEEP DISORDER THERAPY
     Dosage: 2 CAPLET ONCE BEFORE BED
     Route: 048
     Dates: start: 20170428

REACTIONS (2)
  - Product use in unapproved indication [Unknown]
  - Therapeutic response unexpected [Unknown]
